FAERS Safety Report 6470597-9 (Version None)
Quarter: 2009Q4

REPORT INFORMATION
  Report Type: 
  Country: None (occurrence: None)
  Receive Date: 20091203
  Receipt Date: 20091020
  Transmission Date: 20100525
  Serious: No
  Sender: FDA-Public Use
  Company Number: US-ABBOTT-09P-163-0604655-00

PATIENT
  Sex: Female
  Weight: 77.18 kg

DRUGS (6)
  1. MERIDIA [Suspect]
     Indication: OVERWEIGHT
     Route: 048
     Dates: start: 20090927, end: 20090929
  2. MERIDIA [Suspect]
     Indication: OBESITY
  3. DIOVAN [Concomitant]
     Indication: HYPERTENSION
  4. ACTOS [Concomitant]
     Indication: DIABETES MELLITUS
  5. METOPROLOL [Concomitant]
     Indication: HYPERTENSION
     Route: 048
  6. UNKNOWN OTHER MEDICATION [Concomitant]
     Indication: DRUG USE FOR UNKNOWN INDICATION
     Route: 048

REACTIONS (2)
  - NAUSEA [None]
  - TREMOR [None]
